FAERS Safety Report 22127786 (Version 6)
Quarter: 2024Q3

REPORT INFORMATION
  Report Type: Spontaneous
  Country: BR (occurrence: BR)
  Receive Date: 20230323
  Receipt Date: 20240927
  Transmission Date: 20241017
  Serious: Yes (Other)
  Sender: CELLTRION
  Company Number: BR-CELLTRION INC.-2023BR005928

PATIENT

DRUGS (4)
  1. INFLIXIMAB [Suspect]
     Active Substance: INFLIXIMAB
     Indication: Ankylosing spondylitis
     Dosage: 4 AMPOULES (OF 100 MG EACH) EVERY 2 MONTHS
     Route: 042
     Dates: start: 20230117
  2. INFLIXIMAB [Suspect]
     Active Substance: INFLIXIMAB
     Dosage: 4 AMPOULES (OF 100 MG EACH) EVERY 2 MONTHS
     Route: 042
     Dates: start: 20240424
  3. INFLIXIMAB [Suspect]
     Active Substance: INFLIXIMAB
     Dosage: 4 AMPOULES (OF 100 MG EACH) EVERY 2 MONTHS
     Route: 042
     Dates: start: 20240701
  4. DESVENLAFAXINE [Concomitant]
     Active Substance: DESVENLAFAXINE
     Indication: Anxiety
     Dosage: 1 PILL A DAY (START: 2 YEARS AGO)
     Route: 048

REACTIONS (19)
  - Ankylosing spondylitis [Recovered/Resolved]
  - Discomfort [Unknown]
  - Allergic sinusitis [Unknown]
  - Disease susceptibility [Unknown]
  - Bronchitis chronic [Unknown]
  - Oral herpes [Unknown]
  - Candida infection [Unknown]
  - Mouth ulceration [Unknown]
  - Headache [Unknown]
  - Abdominal pain upper [Unknown]
  - Nasopharyngitis [Recovered/Resolved]
  - Influenza [Recovered/Resolved]
  - Hypersensitivity [Recovered/Resolved]
  - Infusion related reaction [Recovered/Resolved]
  - Therapy interrupted [Unknown]
  - Intentional dose omission [Unknown]
  - Underdose [Unknown]
  - Incorrect drug administration rate [Unknown]
  - Therapeutic product effect delayed [Unknown]
